FAERS Safety Report 13453039 (Version 1)
Quarter: 2017Q2

REPORT INFORMATION
  Report Type: Spontaneous
  Country: CA (occurrence: CA)
  Receive Date: 20170418
  Receipt Date: 20170418
  Transmission Date: 20170830
  Serious: Yes (Other)
  Sender: FDA-Public Use
  Company Number: CA-PFIZER INC-2017163315

PATIENT
  Age: 58 Year
  Sex: Female
  Weight: 56 kg

DRUGS (5)
  1. ARAVA [Suspect]
     Active Substance: LEFLUNOMIDE
     Dosage: 20 MG, DAILY
     Route: 048
     Dates: start: 2013
  2. OXYCODONE HYDROCHLORIDE. [Concomitant]
     Active Substance: OXYCODONE HYDROCHLORIDE
     Dosage: 10 MG, MONTHLY
     Route: 048
     Dates: start: 201603
  3. GABAPENTIN. [Suspect]
     Active Substance: GABAPENTIN
     Dosage: 300 MG, 2X/DAY
     Dates: start: 2014
  4. PREDNISONE. [Concomitant]
     Active Substance: PREDNISONE
     Indication: RHEUMATOID ARTHRITIS
     Dosage: 5-50 MG, MONTHLY
     Dates: start: 201603
  5. HUMIRA [Suspect]
     Active Substance: ADALIMUMAB
     Dosage: UNK
     Dates: start: 2013

REACTIONS (3)
  - Rheumatoid arthritis [Unknown]
  - Intracranial aneurysm [Recovered/Resolved]
  - Condition aggravated [Unknown]

NARRATIVE: CASE EVENT DATE: 201704
